FAERS Safety Report 10534536 (Version 3)
Quarter: 2015Q1

REPORT INFORMATION
  Report Type: Report from Study
  Country: BR (occurrence: BR)
  Receive Date: 20141022
  Receipt Date: 20150205
  Transmission Date: 20150720
  Serious: Yes (Hospitalization, Other)
  Sender: FDA-Public Use
  Company Number: BR-ABBVIE-14P-020-1243237-00

PATIENT
  Age: 32 Year
  Sex: Female
  Weight: 63 kg

DRUGS (6)
  1. HUMIRA [Suspect]
     Active Substance: ADALIMUMAB
     Indication: PSORIATIC ARTHROPATHY
     Route: 058
     Dates: start: 20140105, end: 20140322
  2. METHOTREXATE [Concomitant]
     Active Substance: METHOTREXATE
     Indication: ARTHRITIS
     Route: 048
     Dates: start: 201011
  3. VIMOVO [Concomitant]
     Active Substance: ESOMEPRAZOLE MAGNESIUM\NAPROXEN
     Indication: PAIN
     Dosage: 500MG/20MG
     Route: 048
     Dates: start: 201306
  4. METICORTEN [Concomitant]
     Active Substance: PREDNISONE
     Indication: ARTHROPATHY
     Route: 048
     Dates: start: 201012
  5. TRAMAL [Concomitant]
     Active Substance: TRAMADOL
     Indication: PAIN
     Route: 048
     Dates: start: 201012
  6. VELIJA [Concomitant]
     Active Substance: DULOXETINE HYDROCHLORIDE
     Indication: ANTIDEPRESSANT THERAPY
     Route: 048
     Dates: start: 201306, end: 201406

REACTIONS (8)
  - Tuberculosis [Recovering/Resolving]
  - Tuberculosis gastrointestinal [Unknown]
  - Asthenia [Unknown]
  - Localised intraabdominal fluid collection [Recovering/Resolving]
  - Depression [Recovering/Resolving]
  - Immunodeficiency [Unknown]
  - Sensory disturbance [Recovering/Resolving]
  - Weight gain poor [Recovering/Resolving]

NARRATIVE: CASE EVENT DATE: 2014
